FAERS Safety Report 24751209 (Version 1)
Quarter: 2024Q4

REPORT INFORMATION
  Report Type: Spontaneous
  Country: TH (occurrence: TH)
  Receive Date: 20241219
  Receipt Date: 20241219
  Transmission Date: 20250114
  Serious: Yes (Other)
  Sender: IPCA
  Company Number: TH-IPCA LABORATORIES LIMITED-IPC-2024-TH-002943

PATIENT

DRUGS (1)
  1. METFORMIN [Suspect]
     Active Substance: METFORMIN HYDROCHLORIDE
     Indication: Type 2 diabetes mellitus
     Dosage: 1700 MILLIGRAM, QD
     Route: 065

REACTIONS (3)
  - Subdural haematoma [Recovering/Resolving]
  - Vitamin B12 deficiency [Recovering/Resolving]
  - Gait disturbance [Recovering/Resolving]
